FAERS Safety Report 21601003 (Version 2)
Quarter: 2022Q4

REPORT INFORMATION
  Report Type: Other
  Country: BG (occurrence: BG)
  Receive Date: 20221116
  Receipt Date: 20221118
  Transmission Date: 20230113
  Serious: Yes (Death, Hospitalization)
  Sender: FDA-Public Use
  Company Number: BG-BoehringerIngelheim-2022-BI-202356

PATIENT
  Age: 62 Year
  Sex: Male

DRUGS (1)
  1. ALTEPLASE [Suspect]
     Active Substance: ALTEPLASE
     Indication: Product used for unknown indication
     Route: 065

REACTIONS (4)
  - NIH stroke scale score increased [Fatal]
  - Hemiplegia [Fatal]
  - Coma [Fatal]
  - Brain stem syndrome [Fatal]
